FAERS Safety Report 5153820-2 (Version None)
Quarter: 2006Q4

REPORT INFORMATION
  Report Type: 
  Country: None (occurrence: None)
  Receive Date: 20061120
  Receipt Date: 20061116
  Transmission Date: 20070319
  Serious: Yes (Death)
  Sender: FDA-Public Use
  Company Number: 2006UW24566

PATIENT
  Age: 36 Year
  Sex: Female

DRUGS (5)
  1. SEROQUEL [Suspect]
     Route: 048
  2. CLONAPIN [Concomitant]
  3. LORAZEPAM [Concomitant]
  4. LITHIUM CARBONATE [Concomitant]
  5. VICODIN [Concomitant]

REACTIONS (3)
  - COMPLETED SUICIDE [None]
  - OVERDOSE [None]
  - TREATMENT NONCOMPLIANCE [None]
